APPROVED DRUG PRODUCT: DILTIAZEM HYDROCHLORIDE
Active Ingredient: DILTIAZEM HYDROCHLORIDE
Strength: 5MG/ML
Dosage Form/Route: INJECTABLE;INJECTION
Application: A216552 | Product #001
Applicant: EUGIA PHARMA SPECIALITIES LTD
Approved: Mar 29, 2023 | RLD: No | RS: No | Type: DISCN